FAERS Safety Report 9894621 (Version 1)
Quarter: 2014Q1

REPORT INFORMATION
  Report Type: Spontaneous
  Country: KR (occurrence: KR)
  Receive Date: 20140213
  Receipt Date: 20140213
  Transmission Date: 20141002
  Serious: Yes (Death, Hospitalization)
  Sender: FDA-Public Use
  Company Number: PHHY2014KR014633

PATIENT
  Sex: 0

DRUGS (3)
  1. 5-FLUOROURACIL [Suspect]
     Indication: METASTATIC GASTRIC CANCER
  2. OXALIPLATIN [Suspect]
     Indication: METASTATIC GASTRIC CANCER
  3. FOLINIC ACID [Suspect]
     Indication: METASTATIC GASTRIC CANCER

REACTIONS (10)
  - Interstitial lung disease [Fatal]
  - Respiratory failure [Fatal]
  - Dyspnoea exertional [Fatal]
  - Lung infiltration [Fatal]
  - Hypoxia [Fatal]
  - Pleural effusion [Fatal]
  - Cough [Fatal]
  - Pulmonary fibrosis [Unknown]
  - Neuropathy peripheral [Unknown]
  - Thrombocytopenia [Unknown]
